FAERS Safety Report 5027617-8 (Version None)
Quarter: 2006Q2

REPORT INFORMATION
  Report Type: 
  Country: None (occurrence: None)
  Receive Date: 20060616
  Receipt Date: 20060607
  Transmission Date: 20061013
  Serious: Yes (Hospitalization)
  Sender: FDA-Public Use
  Company Number: PHRM2006FR01716

PATIENT
  Age: 84 Year
  Sex: Female
  Weight: 60 kg

DRUGS (12)
  1. COVERSYL [Suspect]
     Dosage: 4 MG, QD
     Route: 048
     Dates: end: 20060220
  2. VEINAMITOL [Suspect]
     Dosage: 1 DF, QD
     Route: 048
     Dates: end: 20060220
  3. FOSAMAX [Suspect]
     Dosage: 1 DF, QW
     Route: 048
     Dates: end: 20060220
  4. PREVISCAN [Suspect]
     Dosage: 0.5 DF, QD
     Route: 048
     Dates: end: 20060212
  5. DEROXAT [Suspect]
     Dosage: 20 MG, QD
     Route: 048
     Dates: end: 20060220
  6. PRAVASTATIN [Concomitant]
     Dosage: 40 MG, QD
     Route: 048
  7. HYPERIUM [Concomitant]
     Dosage: 1 DF, QD
     Route: 048
  8. FORLAX [Concomitant]
     Dosage: 1 TO 2 TABS/DAY
     Route: 048
  9. IXPRIM [Concomitant]
     Dosage: 4 DF, QD
     Route: 048
  10. TAREG [Suspect]
     Dosage: 80 MG, QD
     Route: 048
     Dates: end: 20060220
  11. XANAX [Concomitant]
     Dosage: 0.25 MG, TID
     Route: 048
  12. CACIT D3 [Concomitant]
     Dosage: 2 DF, QD
     Route: 048

REACTIONS (8)
  - APRAXIA [None]
  - CEREBRAL HAEMATOMA [None]
  - CEREBROVASCULAR ACCIDENT [None]
  - EXTENSOR PLANTAR RESPONSE [None]
  - FALL [None]
  - HYPERTENSION [None]
  - SENSORIMOTOR DISORDER [None]
  - SPEECH DISORDER [None]
